FAERS Safety Report 5951197-3 (Version None)
Quarter: 2008Q4

REPORT INFORMATION
  Report Type: 
  Country: None (occurrence: None)
  Receive Date: 20081111
  Receipt Date: 20081111
  Transmission Date: 20090506
  Serious: Yes (Life-Threatening, Other)
  Sender: FDA-Public Use
  Company Number: None

PATIENT
  Sex: Male
  Weight: 17.2367 kg

DRUGS (1)
  1. AUGMENTIN '125' [Suspect]
     Indication: PHARYNGITIS STREPTOCOCCAL
     Dosage: ONE TEASPOON TWO TIMES PER DAY PO
     Route: 048
     Dates: start: 20081105, end: 20081106

REACTIONS (9)
  - ABDOMINAL PAIN UPPER [None]
  - DIARRHOEA [None]
  - DRUG DISPENSING ERROR [None]
  - DYSURIA [None]
  - EATING DISORDER [None]
  - INCORRECT DOSE ADMINISTERED [None]
  - OVERDOSE [None]
  - VOMITING [None]
  - WRONG TECHNIQUE IN DRUG USAGE PROCESS [None]
